FAERS Safety Report 25844522 (Version 4)
Quarter: 2025Q4

REPORT INFORMATION
  Report Type: Spontaneous
  Country: US (occurrence: US)
  Receive Date: 20250925
  Receipt Date: 20251029
  Transmission Date: 20260117
  Serious: No
  Sender: TOLMAR
  Company Number: US-Tolmar-TLM-2025-06660

PATIENT

DRUGS (2)
  1. ELIGARD [Suspect]
     Active Substance: LEUPROLIDE ACETATE
     Indication: Prostate cancer
     Dosage: DEC-2026; NOV-2026; UNK?DOSE NOT ADMINISTERED
  2. DEVICE [Suspect]
     Active Substance: DEVICE
     Indication: Prostate cancer
     Dosage: DEC-2026; NOV-2026; UNK

REACTIONS (3)
  - Product physical consistency issue [Unknown]
  - Intercepted product preparation error [Unknown]
  - Device leakage [Unknown]
